FAERS Safety Report 11588258 (Version 1)
Quarter: 2015Q3

REPORT INFORMATION
  Report Type: Spontaneous
  Country: US (occurrence: None)
  Receive Date: 20150929
  Receipt Date: 20150929
  Transmission Date: 20151125
  Serious: Yes (Other)
  Sender: FDA-Public Use
  Company Number: 15-01-001

PATIENT
  Age: 57 Year
  Sex: Female
  Weight: 90.72 kg

DRUGS (3)
  1. MELOXICAM. [Concomitant]
     Active Substance: MELOXICAM
  2. FYNTHROID [Concomitant]
  3. LEFLUNOMIDE, 20 MG [Suspect]
     Active Substance: LEFLUNOMIDE
     Indication: RHEUMATOID ARTHRITIS
     Dosage: 1/DAY?6/7 MONTHS
     Route: 048

REACTIONS (2)
  - Lacrimation increased [None]
  - Vision blurred [None]

NARRATIVE: CASE EVENT DATE: 20150107
